FAERS Safety Report 4605043-0 (Version None)
Quarter: 2005Q1

REPORT INFORMATION
  Report Type: 
  Country: None (occurrence: None)
  Receive Date: 20050217
  Receipt Date: 20041228
  Transmission Date: 20050727
  Serious: No
  Sender: FDA-Public Use
  Company Number: S04-USA-07986-01

PATIENT
  Age: 75 Year
  Sex: Male

DRUGS (2)
  1. NAMENDA [Suspect]
     Indication: DEMENTIA
     Dosage: UNK
     Route: 065
     Dates: start: 20040301
  2. NAMENDA [Suspect]
     Indication: DEMENTIA
     Dosage: 10 MG BID PO
     Route: 048
     Dates: start: 20040101

REACTIONS (1)
  - RASH [None]
